FAERS Safety Report 13746539 (Version 1)
Quarter: 2017Q3

REPORT INFORMATION
  Report Type: Spontaneous
  Country: JP (occurrence: JP)
  Receive Date: 20170712
  Receipt Date: 20170712
  Transmission Date: 20171127
  Serious: Yes (Other)
  Sender: FDA-Public Use
  Company Number: JP-TEVA-786267ROM

PATIENT
  Age: 67 Year
  Sex: Female

DRUGS (4)
  1. PACLITAXEL. [Suspect]
     Active Substance: PACLITAXEL
     Indication: NON-SMALL CELL LUNG CANCER STAGE IIIA
     Dosage: 40 MG/ME2
     Route: 065
  2. CARBOPLATIN. [Suspect]
     Active Substance: CARBOPLATIN
     Indication: NON-SMALL CELL LUNG CANCER STAGE IIIA
     Dosage: AREA UNDER CURVE 2
     Route: 065
  3. DEXAMETHASONE. [Suspect]
     Active Substance: DEXAMETHASONE
     Indication: ANTIEMETIC SUPPORTIVE CARE
     Dosage: 8 MG/DAY ON DAY 2 AND DAY 3; EVERY WEEK
     Route: 042
  4. DEXAMETHASONE. [Suspect]
     Active Substance: DEXAMETHASONE
     Indication: ANTIEMETIC SUPPORTIVE CARE
     Dosage: 10 MG/DAY ON DAY 1
     Route: 042

REACTIONS (6)
  - Urinary tract obstruction [Unknown]
  - Bone marrow failure [Unknown]
  - Diabetes mellitus inadequate control [Unknown]
  - Emphysematous pyelonephritis [Recovered/Resolved]
  - Emphysematous cystitis [Recovered/Resolved]
  - Klebsiella infection [Recovered/Resolved]
